FAERS Safety Report 21712863 (Version 1)
Quarter: 2022Q4

REPORT INFORMATION
  Report Type: Spontaneous
  Country: US (occurrence: None)
  Receive Date: 20221208
  Receipt Date: 20221208
  Transmission Date: 20230113
  Serious: Yes (Hospitalization)
  Sender: FDA-Public Use
  Company Number: None

PATIENT
  Sex: Female

DRUGS (3)
  1. PROCRIT [Suspect]
     Active Substance: ERYTHROPOIETIN
     Indication: Sickle cell disease
     Dosage: FREQUENCY : WEEKLY;?
     Route: 058
     Dates: start: 201706
  2. PROCRIT [Suspect]
     Active Substance: ERYTHROPOIETIN
     Indication: Thalassaemia beta
  3. PROCRIT [Suspect]
     Active Substance: ERYTHROPOIETIN
     Indication: Sickle cell anaemia with crisis

REACTIONS (1)
  - Hospitalisation [None]

NARRATIVE: CASE EVENT DATE: 20221110
